FAERS Safety Report 20811246 (Version 3)
Quarter: 2022Q3

REPORT INFORMATION
  Report Type: Report from Study
  Country: AU (occurrence: AU)
  Receive Date: 20220510
  Receipt Date: 20220729
  Transmission Date: 20221027
  Serious: Yes (Death, Other)
  Sender: FDA-Public Use
  Company Number: AU-GILEAD-2022-0581179

PATIENT
  Age: 46 Year
  Sex: Female

DRUGS (8)
  1. SACITUZUMAB GOVITECAN [Suspect]
     Active Substance: SACITUZUMAB GOVITECAN
     Indication: Triple negative breast cancer
     Dosage: 10 MG/KG DAYS 1 AND 8 OF A 21-DAY CYCLE
     Route: 042
     Dates: start: 202201
  2. DEXAMETHASONE [Concomitant]
     Active Substance: DEXAMETHASONE
     Dosage: PRE-MEDICATION
  3. PALONOSETRON [Concomitant]
     Active Substance: PALONOSETRON
     Dosage: PRE-MEDICATION
  4. ACETAMINOPHEN [Concomitant]
     Active Substance: ACETAMINOPHEN
     Dosage: PRE-MEDICATION
  5. METOCLOPRAMIDE [Concomitant]
     Active Substance: METOCLOPRAMIDE
     Dosage: PRE-MEDICATION
  6. FILGRASTIM [Concomitant]
     Active Substance: FILGRASTIM
     Dosage: PRE-MEDICATION
  7. ATEZOLIZUMAB [Concomitant]
     Active Substance: ATEZOLIZUMAB
  8. ABRAXANE [Concomitant]
     Active Substance: PACLITAXEL
     Dosage: UNK

REACTIONS (5)
  - Disease progression [Fatal]
  - Fatigue [Unknown]
  - Alopecia [Unknown]
  - Liver function test abnormal [Unknown]
  - Constipation [Unknown]

NARRATIVE: CASE EVENT DATE: 20220426
